FAERS Safety Report 23725738 (Version 1)
Quarter: 2024Q2

REPORT INFORMATION
  Report Type: Report from Study
  Country: US (occurrence: US)
  Receive Date: 20240410
  Receipt Date: 20240410
  Transmission Date: 20240716
  Serious: Yes (Hospitalization, Other)
  Sender: FDA-Public Use
  Company Number: US-ACADIA PHARMACEUTICALS INC.-ACA-2024-PIM-001579

PATIENT
  Age: 93 Year
  Sex: Female

DRUGS (11)
  1. NUPLAZID [Suspect]
     Active Substance: PIMAVANSERIN TARTRATE
     Indication: Parkinson^s disease
     Dosage: 34 MILLIGRAM, QD
     Route: 048
     Dates: start: 20220428
  2. OXYBUTYNIN [Concomitant]
     Active Substance: OXYBUTYNIN\OXYBUTYNIN CHLORIDE
  3. OMEPRAZOLE [Concomitant]
     Active Substance: OMEPRAZOLE
  4. CARBIDOPA LEVODOPA [Concomitant]
     Active Substance: CARBIDOPA\LEVODOPA
  5. LOSARTAN [Concomitant]
     Active Substance: LOSARTAN
  6. AMIODARONE [Concomitant]
     Active Substance: AMIODARONE
  7. PRAVASTATIN [Concomitant]
     Active Substance: PRAVASTATIN
  8. STOOL SOFTENER (DOCUSATE) [Concomitant]
     Active Substance: DOCUSATE
  9. VITAMIN C [Concomitant]
     Active Substance: ASCORBIC ACID
  10. FOLIC ACID [Concomitant]
     Active Substance: FOLIC ACID
  11. QUETIAPINE [Concomitant]
     Active Substance: QUETIAPINE

REACTIONS (4)
  - Hip fracture [Unknown]
  - Hip arthroplasty [Unknown]
  - Fall [Unknown]
  - Product dose omission issue [Unknown]

NARRATIVE: CASE EVENT DATE: 20240310
